FAERS Safety Report 5987869-4 (Version None)
Quarter: 2008Q4

REPORT INFORMATION
  Report Type: 
  Country: None (occurrence: None)
  Receive Date: 20081209
  Receipt Date: 20080221
  Transmission Date: 20090506
  Serious: No
  Sender: FDA-Public Use
  Company Number: US-TYCO HEALTHCARE/MALLINCKRODT-T200800335

PATIENT

DRUGS (7)
  1. ULTRA-TECHNEKOW [Suspect]
     Indication: CARDIAC STRESS TEST
     Dosage: 30 MCI, UNK
     Route: 042
     Dates: start: 20080219, end: 20080219
  2. ULTRA-TECHNEKOW [Suspect]
     Dosage: 30 MCI, UNK
     Route: 042
     Dates: start: 20080219, end: 20080219
  3. MYOVIEW [Suspect]
     Indication: CARDIAC STRESS TEST
     Route: 042
     Dates: start: 20080219, end: 20080219
  4. MYOVIEW [Suspect]
     Route: 042
     Dates: start: 20080219, end: 20080219
  5. AMINOPHYLLINE [Concomitant]
  6. FOSAMAX [Concomitant]
     Dosage: UNK, QD
     Route: 048
  7. NAPROSYN [Concomitant]
     Dosage: UNK, QD
     Route: 048

REACTIONS (2)
  - HYPERSENSITIVITY [None]
  - INJECTION SITE ERYTHEMA [None]
